FAERS Safety Report 9537421 (Version 1)
Quarter: 2013Q3

REPORT INFORMATION
  Report Type: Spontaneous
  Country: IT (occurrence: IT)
  Receive Date: 20130919
  Receipt Date: 20130919
  Transmission Date: 20140515
  Serious: Yes (Hospitalization)
  Sender: FDA-Public Use
  Company Number: IT-TEVA-431160ISR

PATIENT
  Age: 64 Year
  Sex: Female
  Weight: 55 kg

DRUGS (4)
  1. METOTREXATO [Suspect]
     Indication: RHEUMATOID ARTHRITIS
     Dosage: 15 MILLIGRAM DAILY;
     Route: 030
     Dates: start: 20060101, end: 20120919
  2. ORENCIA 250MG [Suspect]
     Indication: RHEUMATOID ARTHRITIS
     Dosage: 500 MILLIGRAM DAILY; POWDER FOR CONCENTRATE FOR SOLUTION FOR INFUSION
     Route: 042
     Dates: start: 20111017, end: 20120919
  3. NICOZID 200MG [Concomitant]
     Indication: LATENT TUBERCULOSIS
  4. MOBIC 15MG [Concomitant]
     Indication: RHEUMATOID ARTHRITIS

REACTIONS (1)
  - Invasive lobular breast carcinoma [Recovered/Resolved with Sequelae]
